FAERS Safety Report 8038016-9 (Version None)
Quarter: 2012Q1

REPORT INFORMATION
  Report Type: 
  Country: None (occurrence: None)
  Receive Date: 20120111
  Receipt Date: 20120103
  Transmission Date: 20120608
  Serious: Yes (Other)
  Sender: FDA-Public Use
  Company Number: US-ASTRAZENECA-2012SE00549

PATIENT
  Age: 55 Year
  Sex: Male

DRUGS (9)
  1. NEXIUM [Suspect]
     Route: 048
  2. HYDROCHOLOROTHIAZIDE [Concomitant]
  3. LYRICA [Concomitant]
  4. ATENOLOL [Concomitant]
  5. LISINOPRIL [Concomitant]
  6. SERTRALINE HYDROCHLORIDE [Concomitant]
  7. HYDROXYZINE [Concomitant]
  8. AMITRIPTYLINE HCL [Concomitant]
  9. BUPROPION HCL [Concomitant]

REACTIONS (3)
  - BURNING SENSATION [None]
  - HAEMOPTYSIS [None]
  - PAIN [None]
